FAERS Safety Report 22267233 (Version 1)
Quarter: 2023Q2

REPORT INFORMATION
  Report Type: Spontaneous
  Country: US (occurrence: US)
  Receive Date: 20230428
  Receipt Date: 20230428
  Transmission Date: 20230722
  Serious: Yes (Death)
  Sender: FDA-Public Use
  Company Number: US-SHIONOGI, INC-2023001012

PATIENT
  Age: 75 Year
  Sex: Female

DRUGS (12)
  1. FETROJA [Suspect]
     Active Substance: CEFIDEROCOL SULFATE TOSYLATE
     Indication: Acinetobacter infection
     Dosage: 1.5 G, 8 HOUR
     Route: 042
  2. FETROJA [Suspect]
     Active Substance: CEFIDEROCOL SULFATE TOSYLATE
     Indication: Wound infection
  3. FETROJA [Suspect]
     Active Substance: CEFIDEROCOL SULFATE TOSYLATE
     Indication: Haematological infection
  4. TIGECYCLINE [Suspect]
     Active Substance: TIGECYCLINE
     Indication: Acinetobacter infection
     Route: 065
  5. TIGECYCLINE [Suspect]
     Active Substance: TIGECYCLINE
     Indication: Wound infection
  6. TIGECYCLINE [Suspect]
     Active Substance: TIGECYCLINE
     Indication: Haematological infection
  7. MEROPENEM [Concomitant]
     Active Substance: MEROPENEM
     Indication: Acinetobacter infection
     Route: 065
  8. MEROPENEM [Concomitant]
     Active Substance: MEROPENEM
     Indication: Wound infection
  9. MEROPENEM [Concomitant]
     Active Substance: MEROPENEM
     Indication: Haematological infection
  10. POLYMYXIN B [Concomitant]
     Active Substance: POLYMYXIN B
     Indication: Acinetobacter infection
     Route: 065
  11. POLYMYXIN B [Concomitant]
     Active Substance: POLYMYXIN B
     Indication: Wound infection
  12. POLYMYXIN B [Concomitant]
     Active Substance: POLYMYXIN B
     Indication: Haematological infection

REACTIONS (1)
  - Death [Fatal]
